FAERS Safety Report 11811341 (Version 4)
Quarter: 2016Q1

REPORT INFORMATION
  Report Type: Report from Study
  Country: NZ (occurrence: NZ)
  Receive Date: 20151208
  Receipt Date: 20160229
  Transmission Date: 20160525
  Serious: Yes (Hospitalization, Other)
  Sender: FDA-Public Use
  Company Number: NZ-ABBVIE-15K-118-1493843-00

PATIENT
  Age: 58 Year
  Sex: Male

DRUGS (1)
  1. HUMIRA [Suspect]
     Active Substance: ADALIMUMAB
     Indication: CROHN^S DISEASE
     Route: 058

REACTIONS (11)
  - Colon neoplasm [Unknown]
  - Pain [Unknown]
  - Pelvic pain [Recovered/Resolved]
  - Nausea [Unknown]
  - Hypophagia [Unknown]
  - Fatigue [Unknown]
  - Malignant peritoneal neoplasm [Unknown]
  - Activities of daily living impaired [Unknown]
  - Weight decreased [Unknown]
  - Insomnia [Not Recovered/Not Resolved]
  - Pelvic pain [Unknown]

NARRATIVE: CASE EVENT DATE: 201511
